FAERS Safety Report 25918285 (Version 1)
Quarter: 2025Q4

REPORT INFORMATION
  Report Type: Spontaneous
  Country: EU (occurrence: EU)
  Receive Date: 20251014
  Receipt Date: 20251014
  Transmission Date: 20260119
  Serious: Yes (Death)
  Sender: INSMED
  Company Number: EU-INSMED, INC.-2025-04584-FR

PATIENT
  Sex: Male

DRUGS (1)
  1. ARIKAYCE [Suspect]
     Active Substance: AMIKACIN
     Indication: Atypical mycobacterial infection
     Dosage: UNK, QD
     Route: 055
     Dates: start: 20250903

REACTIONS (2)
  - Death [Fatal]
  - Product temperature excursion issue [Unknown]

NARRATIVE: CASE EVENT DATE: 20250101
